FAERS Safety Report 4583543-X (Version None)
Quarter: 2005Q1

REPORT INFORMATION
  Report Type: 
  Country: None (occurrence: None)
  Receive Date: 20050211
  Receipt Date: 20050201
  Transmission Date: 20050727
  Serious: Yes (Congenital Anomaly, Other)
  Sender: FDA-Public Use
  Company Number: SUSI-2005-00069

PATIENT
  Sex: 0

DRUGS (1)
  1. MESALAZINE CONTROLLED RELEASE (MESALAZINE) CAPSULE CR [Suspect]
     Dosage: 4 G, DAILY, INTRA-UTERINE
     Route: 015

REACTIONS (4)
  - CONGENITAL NEPHROTIC SYNDROME [None]
  - DRUG EXPOSURE DURING PREGNANCY [None]
  - PRESCRIBED OVERDOSE [None]
  - RENAL FAILURE [None]
